FAERS Safety Report 18215453 (Version 2)
Quarter: 2020Q3

REPORT INFORMATION
  Report Type: Report from Study
  Country: JP (occurrence: JP)
  Receive Date: 20200901
  Receipt Date: 20200917
  Transmission Date: 20201103
  Serious: Yes (Other)
  Sender: FDA-Public Use
  Company Number: JP-SAKK-2020SA225867AA

PATIENT

DRUGS (2)
  1. CISPLATIN. [Suspect]
     Active Substance: CISPLATIN
     Indication: NON-SMALL CELL LUNG CANCER STAGE IIIB
     Route: 065
  2. DOCETAXEL. [Suspect]
     Active Substance: DOCETAXEL
     Indication: NON-SMALL CELL LUNG CANCER STAGE IIIB
     Route: 041

REACTIONS (8)
  - Pseudomonas infection [Unknown]
  - Bronchopulmonary aspergillosis [Unknown]
  - Cough [Unknown]
  - Sputum purulent [Unknown]
  - Pyrexia [Unknown]
  - Empyema [Unknown]
  - Pneumothorax [Unknown]
  - Bronchopleural fistula [Unknown]
